FAERS Safety Report 8371475-0 (Version None)
Quarter: 2012Q2

REPORT INFORMATION
  Report Type: 
  Country: None (occurrence: None)
  Receive Date: 20120518
  Receipt Date: 20120508
  Transmission Date: 20120825
  Serious: Yes (Hospitalization)
  Sender: FDA-Public Use
  Company Number: AR-ABBOTT-12P-007-0933679-00

PATIENT
  Sex: Female

DRUGS (4)
  1. RITONAVIR [Suspect]
     Indication: HIV INFECTION
     Route: 048
     Dates: start: 20110927, end: 20120426
  2. MIGRAL [Concomitant]
     Indication: HEADACHE
     Dosage: 2 PILLS SELF-ADMINISTERED
     Dates: start: 20120426, end: 20120426
  3. EMTRICITABINE/TENOFOVIR DISOPROXIL FUMARATE [Concomitant]
     Indication: HIV INFECTION
     Route: 048
     Dates: start: 20110927, end: 20120426
  4. ATAZANAVIR SULFATE [Concomitant]
     Indication: HIV INFECTION
     Route: 048
     Dates: start: 20110927, end: 20120426

REACTIONS (1)
  - ERGOT POISONING [None]
